FAERS Safety Report 8768845 (Version 2)
Quarter: 2012Q4

REPORT INFORMATION
  Report Type: 
  Country: US (occurrence: US)
  Receive Date: 20120904
  Receipt Date: 20121130
  Transmission Date: 20130627
  Serious: Yes (Life-Threatening, Hospitalization, Other)
  Sender: FDA-Public Use
  Company Number: US-ASTRAZENECA-2012SE64683

PATIENT
  Age: 42 Year
  Sex: Male
  Weight: 94.8 kg

DRUGS (4)
  1. SEROQUEL [Suspect]
     Indication: BIPOLAR DISORDER
     Route: 048
     Dates: start: 20101117, end: 20101215
  2. SEROQUEL [Suspect]
     Indication: SCHIZOPHRENIA
     Route: 048
     Dates: start: 20101117, end: 20101215
  3. COGENTIN [Concomitant]
  4. HALSOL DEC [Concomitant]

REACTIONS (1)
  - Priapism [Recovered/Resolved]
